FAERS Safety Report 24084059 (Version 1)
Quarter: 2024Q3

REPORT INFORMATION
  Report Type: Report from Study
  Country: MA (occurrence: MA)
  Receive Date: 20240712
  Receipt Date: 20240712
  Transmission Date: 20241017
  Serious: Yes (Death, Other)
  Sender: ROCHE
  Company Number: MA-ROCHE-10000016697

PATIENT

DRUGS (2)
  1. RITUXIMAB [Suspect]
     Active Substance: RITUXIMAB
     Indication: Product used for unknown indication
     Route: 065
  2. TOCILIZUMAB [Suspect]
     Active Substance: TOCILIZUMAB
     Indication: Product used for unknown indication
     Route: 065

REACTIONS (16)
  - Hypogammaglobulinaemia [Unknown]
  - Infection [Unknown]
  - Herpes zoster [Unknown]
  - Herpes zoster oticus [Unknown]
  - Cytomegalovirus chorioretinitis [Unknown]
  - Influenza like illness [Unknown]
  - COVID-19 [Unknown]
  - Tuberculosis [Unknown]
  - Urinary tract infection [Unknown]
  - Renal abscess [Unknown]
  - Epididymitis [Unknown]
  - Pneumonia [Unknown]
  - Oesophageal candidiasis [Unknown]
  - Sepsis [Fatal]
  - Anaphylactic shock [Unknown]
  - Hypoxia [Unknown]
